FAERS Safety Report 23631945 (Version 1)
Quarter: 2024Q1

REPORT INFORMATION
  Report Type: Spontaneous
  Country: US (occurrence: None)
  Receive Date: 20240313
  Receipt Date: 20240313
  Transmission Date: 20240409
  Serious: Yes (Hospitalization)
  Sender: FDA-Public Use
  Company Number: None

PATIENT
  Age: 85 Year
  Sex: Female
  Weight: 56.25 kg

DRUGS (12)
  1. GABAPENTIN [Suspect]
     Active Substance: GABAPENTIN
     Indication: Nerve injury
     Dosage: 1 CAPSULE AT BEDTIME ORAL
     Route: 048
     Dates: start: 20240211, end: 20240214
  2. GABAPENTIN [Suspect]
     Active Substance: GABAPENTIN
     Indication: Swelling
  3. LEVOTHYROXINE [Concomitant]
     Active Substance: LEVOTHYROXINE\LEVOTHYROXINE SODIUM
  4. MAGNESIUM [Concomitant]
     Active Substance: MAGNESIUM
  5. JOINT (GLUCOSAMINE, CHRONDROITIN) [Concomitant]
  6. VITAMIN B12 [Concomitant]
     Active Substance: CYANOCOBALAMIN
  7. ZINC [Concomitant]
     Active Substance: PYRITHIONE ZINC\ZINC\ZINC CHLORIDE
  8. VITAMIN C [Concomitant]
     Active Substance: ASCORBIC ACID
  9. VITAMIN D3 [Concomitant]
     Active Substance: CHOLECALCIFEROL
  10. BEET [Concomitant]
     Active Substance: BEET
  11. HERBALS\TURMERIC [Concomitant]
     Active Substance: HERBALS\TURMERIC
  12. OMEGA 3-6 [Concomitant]

REACTIONS (6)
  - Loss of consciousness [None]
  - Fall [None]
  - Skin laceration [None]
  - Amnesia [None]
  - Concussion [None]
  - Head injury [None]

NARRATIVE: CASE EVENT DATE: 20240215
